FAERS Safety Report 15748306 (Version 13)
Quarter: 2021Q3

REPORT INFORMATION
  Report Type: Spontaneous
  Country: GB (occurrence: GB)
  Receive Date: 20181221
  Receipt Date: 20210820
  Transmission Date: 20211014
  Serious: Yes (Hospitalization, Other)
  Sender: FDA-Public Use
  Company Number: GB-SUN PHARMACEUTICAL INDUSTRIES LTD-2018RR-194143

PATIENT
  Age: 73 Year
  Sex: Male

DRUGS (5)
  1. FLUCLOXACILLIN [Concomitant]
     Active Substance: FLUCLOXACILLIN
     Dosage: UNK
     Route: 065
     Dates: start: 201806
  2. ATORVASTATIN [Suspect]
     Active Substance: ATORVASTATIN
     Indication: INFECTION
     Dosage: 80 MILLIGRAM, UNK
     Route: 065
     Dates: start: 201806
  3. FUSIDIC ACID [Suspect]
     Active Substance: FUSIDIC ACID
     Indication: WOUND INFECTION
     Dosage: UNK
     Route: 065
     Dates: start: 201806
  4. FUSIDIC ACID [Suspect]
     Active Substance: FUSIDIC ACID
     Indication: INFECTION
  5. FLUCLOXACILLIN [Concomitant]
     Active Substance: FLUCLOXACILLIN
     Indication: WOUND INFECTION
     Dosage: UNK
     Route: 065
     Dates: start: 201801

REACTIONS (6)
  - Myalgia [Unknown]
  - Drug interaction [Unknown]
  - Blood creatine phosphokinase increased [Unknown]
  - Labelled drug-drug interaction medication error [Unknown]
  - Chromaturia [Unknown]
  - Rhabdomyolysis [Unknown]

NARRATIVE: CASE EVENT DATE: 20180731
